FAERS Safety Report 18789664 (Version 1)
Quarter: 2021Q1

REPORT INFORMATION
  Report Type: Spontaneous
  Country: GB (occurrence: GB)
  Receive Date: 20210126
  Receipt Date: 20210126
  Transmission Date: 20210419
  Serious: Yes (Other)
  Sender: FDA-Public Use
  Company Number: GB-MYLANLABS-2021M1004163

PATIENT
  Age: 54 Year
  Sex: Male
  Weight: 116 kg

DRUGS (15)
  1. NAPROXEN. [Concomitant]
     Active Substance: NAPROXEN
     Dosage: 1 DOSAGE FORM, BID (TAKE ONE TABLET TWICE DAILY. TAKE WITH OR JUST ...)
     Dates: start: 20200516
  2. SERC (BETAHISTINE HYDROCHLORIDE) [Concomitant]
     Active Substance: BETAHISTINE HYDROCHLORIDE
     Dosage: 48 MILLIGRAM, QD (TAKE 48MG DAILY (3 TABLETS) 3 TIMES/DAY)
     Dates: start: 20200516
  3. AMLODIPINE [Concomitant]
     Active Substance: AMLODIPINE BESYLATE
     Dosage: 1 DOSAGE FORM, QD (ONE TO BE TAKEN EACH DAY)
     Dates: start: 20200516
  4. ATORVASTATIN [Concomitant]
     Active Substance: ATORVASTATIN
     Dosage: 1 DOSAGE FORM, QD (TAKE ONE DAILY)
     Dates: start: 20200516
  5. LACTULOSE. [Concomitant]
     Active Substance: LACTULOSE
     Dosage: 1 DOSAGE FORM, BID (TAKE 10?15ML TWICE A DAY AS NEEDED (8AM + 8PM))
     Dates: start: 20200516
  6. PARACETAMOL [Concomitant]
     Active Substance: ACETAMINOPHEN
     Dosage: TAKE ONE OR TWO TABLETS, FOUR TIMES DAILY WHEN ...
     Dates: start: 20200516
  7. SODIUM VALPROATE [Concomitant]
     Active Substance: VALPROATE SODIUM
     Dosage: 1 DOSAGE FORM, QD (TAKE ONE TABLET AT NIGHT AS PER NEUROLOGY)
     Dates: start: 20201008
  8. TOPIRAMATE. [Suspect]
     Active Substance: TOPIRAMATE
     Indication: PRODUCT USED FOR UNKNOWN INDICATION
     Dosage: AT NIGHT. 25MG AND 50MG
     Dates: start: 20200516
  9. ATENOLOL. [Concomitant]
     Active Substance: ATENOLOL
     Dosage: 2 DOSAGE FORM, QD (TWO TO BE TAKEN EACH MORNING)
     Dates: start: 20200516
  10. DOXAZOSIN [Concomitant]
     Active Substance: DOXAZOSIN MESYLATE
     Dosage: 2 DOSAGE FORM, BID (2 TO BE TAKEN TWICE DAILY)
     Dates: start: 20200516
  11. LYRICA [Concomitant]
     Active Substance: PREGABALIN
     Dosage: 100 MILLIGRAM, TID (100MG THREE TIMES A DAY)
     Dates: start: 20200612
  12. MACROGOL [Concomitant]
     Active Substance: POLYETHYLENE GLYCOLS
     Dosage: 1 DOSAGE FORM, BID (TAKE ONE SACHET TWICE A DAY AS NECESSARY)
     Dates: start: 20200516
  13. METFORMIN [Concomitant]
     Active Substance: METFORMIN HYDROCHLORIDE
     Dosage: 1 DOSAGE FORM, BID (ONE TWICE DAILY)
     Dates: start: 20200516
  14. ZOLMITRIPTAN. [Concomitant]
     Active Substance: ZOLMITRIPTAN
     Indication: MIGRAINE
     Dosage: 1 DOSAGE FORM, PRN (TAKE ONE TABLET AT THE ONSET OF MIGRAINE, DOSE ...)
     Dates: start: 20200516
  15. OMEPRAZOLE. [Concomitant]
     Active Substance: OMEPRAZOLE
     Dosage: 1 DOSAGE FORM, QD (TAKE ONE DAILY. TAKE ALONGSIDE ANTI?INFLAMMATOR...)
     Dates: start: 20200516

REACTIONS (5)
  - Visual impairment [Recovered/Resolved]
  - Epistaxis [Recovered/Resolved]
  - Asthenia [Unknown]
  - Suicidal ideation [Recovered/Resolved]
  - Dyspnoea [Recovered/Resolved]

NARRATIVE: CASE EVENT DATE: 20200609
